FAERS Safety Report 25847337 (Version 1)
Quarter: 2025Q3

REPORT INFORMATION
  Report Type: Report from Study
  Country: US (occurrence: US)
  Receive Date: 20250925
  Receipt Date: 20250925
  Transmission Date: 20251020
  Serious: No
  Sender: AGIOS PHARMACEUTICALS
  Company Number: US-AGIOS-2509US04471

PATIENT
  Sex: Male
  Weight: 41.723 kg

DRUGS (1)
  1. MITAPIVAT [Suspect]
     Active Substance: MITAPIVAT
     Indication: Pyruvate kinase deficiency anaemia
     Route: 048
     Dates: start: 20250306

REACTIONS (4)
  - Streptococcal infection [Unknown]
  - Asthma [Unknown]
  - Rash [Unknown]
  - Bacterial infection [Unknown]
